FAERS Safety Report 6087595-X (Version None)
Quarter: 2009Q1

REPORT INFORMATION
  Report Type: 
  Country: None (occurrence: None)
  Receive Date: 20090223
  Receipt Date: 20090218
  Transmission Date: 20090719
  Serious: No
  Sender: FDA-Public Use
  Company Number: US-JNJFOC-20090204790

PATIENT
  Sex: Male
  Weight: 56.7 kg

DRUGS (6)
  1. FENTANYL TRANSDERMAL SYSTEM [Suspect]
     Indication: SPINAL DISORDER
     Route: 062
  2. FENTANYL TRANSDERMAL SYSTEM [Suspect]
     Indication: EXOSTOSIS
     Route: 062
  3. FENTANYL TRANSDERMAL SYSTEM [Suspect]
     Indication: SPINAL DISORDER
     Route: 062
  4. FENTANYL TRANSDERMAL SYSTEM [Suspect]
     Indication: EXOSTOSIS
     Route: 062
  5. OXYCONTIN [Concomitant]
     Indication: PAIN
     Dosage: 4-5 TIMES A DAY
     Route: 048
  6. XANAX [Concomitant]
     Indication: ANXIETY
     Route: 048

REACTIONS (2)
  - DIARRHOEA [None]
  - WRONG TECHNIQUE IN DRUG USAGE PROCESS [None]
